FAERS Safety Report 9727365 (Version 1)
Quarter: 2013Q4

REPORT INFORMATION
  Report Type: Spontaneous
  Country: NL (occurrence: None)
  Receive Date: 20131129
  Receipt Date: 20131129
  Transmission Date: 20140711
  Serious: Yes (Other)
  Sender: FDA-Public Use
  Company Number: 2013AP009997

PATIENT
  Sex: Female

DRUGS (5)
  1. OMEPRAZOLE (OMEPRAZOLE) [Suspect]
     Indication: PROPHYLAXIS AGAINST GASTROINTESTINAL ULCER
  2. MELOXICAM (MELOXICAM) [Suspect]
  3. TERIPARATIDE (TERIPARATIDE) [Concomitant]
  4. BUDESONIDE (BUDESONIDE) [Concomitant]
  5. CALCIUM D3 (CALCIUM D3) [Concomitant]

REACTIONS (2)
  - Tinnitus [None]
  - Deafness unilateral [None]
